FAERS Safety Report 20809586 (Version 1)
Quarter: 2022Q2

REPORT INFORMATION
  Report Type: Spontaneous
  Country: US (occurrence: US)
  Receive Date: 20220510
  Receipt Date: 20220510
  Transmission Date: 20220720
  Serious: No
  Sender: FDA-Public Use
  Company Number: US-HBP-2022US026327

PATIENT
  Age: 44 Year
  Sex: Female

DRUGS (3)
  1. MECHLORETHAMINE [Suspect]
     Active Substance: MECHLORETHAMINE
     Indication: Cutaneous T-cell lymphoma stage I
     Dosage: UNK, 5/WEEK
     Route: 061
     Dates: start: 202003, end: 20220330
  2. MECHLORETHAMINE [Suspect]
     Active Substance: MECHLORETHAMINE
     Indication: Cutaneous T-cell lymphoma stage II
     Dosage: UNK, INCREASE USE OF CL/MC GEL BY APPLYING IT FROM NECK DOWN EVERY OTHER DAY
     Route: 061
     Dates: start: 202004
  3. BEXAROTENE [Concomitant]
     Active Substance: BEXAROTENE
     Dosage: 300 MG, QD

REACTIONS (6)
  - COVID-19 [Unknown]
  - Treatment noncompliance [Unknown]
  - Condition aggravated [Recovering/Resolving]
  - Off label use [Unknown]
  - Therapy interrupted [Unknown]
  - Skin irritation [Unknown]

NARRATIVE: CASE EVENT DATE: 20200101
